FAERS Safety Report 6835560-4 (Version None)
Quarter: 2010Q3

REPORT INFORMATION
  Report Type: 
  Country: None (occurrence: None)
  Receive Date: 20100713
  Receipt Date: 20100707
  Transmission Date: 20110219
  Serious: Yes (Other)
  Sender: FDA-Public Use
  Company Number: US-BRISTOL-MYERS SQUIBB COMPANY-15183072

PATIENT

DRUGS (1)
  1. PRAVASTATIN SODIUM [Suspect]
     Indication: BLOOD CHOLESTEROL INCREASED

REACTIONS (4)
  - ASTHENIA [None]
  - CATARACT [None]
  - MYALGIA [None]
  - RENAL IMPAIRMENT [None]
